FAERS Safety Report 14570123 (Version 1)
Quarter: 2018Q1

REPORT INFORMATION
  Report Type: Spontaneous
  Country: US (occurrence: US)
  Receive Date: 20180225
  Receipt Date: 20180225
  Transmission Date: 20180509
  Serious: Yes (Other)
  Sender: FDA-Public Use
  Company Number: US-JNJFOC-20180217507

PATIENT
  Age: 34 Year
  Sex: Female
  Weight: 80.74 kg

DRUGS (7)
  1. CLONAZEPAM. [Concomitant]
     Active Substance: CLONAZEPAM
     Indication: NEURALGIA
     Dosage: AM AND PM
     Route: 065
  2. DICYCLOMINE [Concomitant]
     Active Substance: DICYCLOMINE HYDROCHLORIDE
     Indication: GASTROOESOPHAGEAL REFLUX DISEASE
     Route: 065
  3. DEXILANT [Concomitant]
     Active Substance: DEXLANSOPRAZOLE
     Indication: GASTROOESOPHAGEAL REFLUX DISEASE
     Dosage: IN THE MORNING
     Route: 065
  4. LISINOPRIL. [Concomitant]
     Active Substance: LISINOPRIL
     Indication: HYPERTENSION
     Route: 065
  5. CARBATROL [Concomitant]
     Active Substance: CARBAMAZEPINE
     Indication: SEIZURE
     Dosage: AM AND PM
     Route: 065
  6. TOPAMAX [Suspect]
     Active Substance: TOPIRAMATE
     Indication: SEIZURE
     Dosage: AM AND PM
     Route: 048
     Dates: start: 2010
  7. FOLIC ACID. [Concomitant]
     Active Substance: FOLIC ACID
     Indication: SUPPLEMENTATION THERAPY
     Route: 065

REACTIONS (3)
  - Drug dose omission [Unknown]
  - Generalised tonic-clonic seizure [Unknown]
  - Product availability issue [Unknown]

NARRATIVE: CASE EVENT DATE: 201801
